FAERS Safety Report 6393104-8 (Version None)
Quarter: 2009Q4

REPORT INFORMATION
  Report Type: 
  Country: None (occurrence: None)
  Receive Date: 20091008
  Receipt Date: 20091001
  Transmission Date: 20100525
  Serious: Yes (Death)
  Sender: FDA-Public Use
  Company Number: US-CELGENEUS-163-21880-09100214

PATIENT
  Sex: Male

DRUGS (5)
  1. REVLIMID [Suspect]
     Route: 048
     Dates: end: 20080101
  2. REVLIMID [Suspect]
     Route: 048
     Dates: start: 20070801
  3. THALOMID [Suspect]
     Route: 048
     Dates: start: 20080401, end: 20080101
  4. THALOMID [Suspect]
     Dosage: 100MG-50MG
     Route: 048
     Dates: start: 20080101, end: 20080401
  5. ATENOLOL [Concomitant]
     Indication: DRUG USE FOR UNKNOWN INDICATION
     Route: 065

REACTIONS (2)
  - RESPIRATORY FAILURE [None]
  - SEPSIS [None]
